FAERS Safety Report 8785202 (Version 1)
Quarter: 2012Q4

REPORT INFORMATION
  Report Type: Spontaneous
  Country: BR (occurrence: None)
  Receive Date: 20120905
  Receipt Date: 20120905
  Transmission Date: 20130627
  Serious: Yes (Death)
  Sender: FDA-Public Use
  Company Number: BR-1193963

PATIENT
  Age: 80 Year
  Sex: Male
  Weight: 69 kg

DRUGS (2)
  1. DUOTRAV OPHTHALMIC SOLUTION (DUO-TRAVATAN) [Suspect]
     Dosage: 1 Gtt QD OU Ophthalmic)
     Route: 047
     Dates: end: 20120823
  2. AZOPT 1% [Suspect]
     Dosage: (1 Gtt QD OU Ophthalmic)
     Route: 047

REACTIONS (1)
  - Death [None]
